FAERS Safety Report 17460896 (Version 1)
Quarter: 2020Q1

REPORT INFORMATION
  Report Type: Spontaneous
  Country: US (occurrence: US)
  Receive Date: 20200226
  Receipt Date: 20200226
  Transmission Date: 20200409
  Serious: No
  Sender: FDA-Public Use
  Company Number: US-009507513-2002USA001479

PATIENT
  Age: 31 Year
  Sex: Female
  Weight: 90.7 kg

DRUGS (4)
  1. NUVARING [Suspect]
     Active Substance: ETHINYL ESTRADIOL\ETONOGESTREL
     Dosage: 1 RING EVERY MONTH
     Route: 067
     Dates: start: 2020
  2. NUVARING [Suspect]
     Active Substance: ETHINYL ESTRADIOL\ETONOGESTREL
     Indication: MENSTRUATION IRREGULAR
     Dosage: 1 RING EVERY MONTH
     Route: 067
     Dates: start: 2006, end: 202001
  3. NUVARING [Suspect]
     Active Substance: ETHINYL ESTRADIOL\ETONOGESTREL
     Indication: PAIN
     Dosage: 1 RING EVERY MONTH
     Route: 067
     Dates: start: 20200116, end: 20200123
  4. NUVARING [Suspect]
     Active Substance: ETHINYL ESTRADIOL\ETONOGESTREL
     Indication: MENORRHAGIA
     Dosage: 1 RING EVERY MONTH
     Route: 067
     Dates: start: 202001, end: 202001

REACTIONS (7)
  - Medical device site discomfort [Recovered/Resolved]
  - Therapeutic product effective for unapproved indication [Unknown]
  - Medical device site discomfort [Recovered/Resolved]
  - Product storage error [Unknown]
  - Device breakage [Unknown]
  - Device breakage [Unknown]
  - Product use in unapproved indication [Unknown]

NARRATIVE: CASE EVENT DATE: 2006
